FAERS Safety Report 13175298 (Version 2)
Quarter: 2017Q1

REPORT INFORMATION
  Report Type: Report from Study
  Country: CA (occurrence: CA)
  Receive Date: 20170201
  Receipt Date: 20170303
  Transmission Date: 20170428
  Serious: Yes (Other)
  Sender: FDA-Public Use
  Company Number: CA-JNJFOC-20170127020

PATIENT
  Age: 73 Year
  Sex: Female

DRUGS (1)
  1. IMBRUVICA [Suspect]
     Active Substance: IBRUTINIB
     Indication: MANTLE CELL LYMPHOMA
     Route: 048
     Dates: start: 20160816

REACTIONS (7)
  - Onychoclasis [Unknown]
  - Dysphonia [Unknown]
  - Haematochezia [Recovered/Resolved]
  - Nasopharyngitis [Recovering/Resolving]
  - Diarrhoea [Unknown]
  - Dry skin [Unknown]
  - Mouth swelling [Recovered/Resolved]

NARRATIVE: CASE EVENT DATE: 201701
